FAERS Safety Report 9908558 (Version 1)
Quarter: 2014Q1

REPORT INFORMATION
  Report Type: Spontaneous
  Country: US (occurrence: None)
  Receive Date: 20140212
  Receipt Date: 20140212
  Transmission Date: 20141002
  Serious: Yes (Hospitalization)
  Sender: FDA-Public Use
  Company Number: None

PATIENT
  Age: 73 Year
  Sex: Male
  Weight: 81.8 kg

DRUGS (2)
  1. IBUPROFEN [Suspect]
     Indication: PAIN
     Route: 048
     Dates: start: 20140131, end: 20140210
  2. MELOXICAM [Suspect]
     Indication: ARTHRITIS
     Route: 048
     Dates: start: 20070515, end: 20140210

REACTIONS (1)
  - Gastric haemorrhage [None]
